FAERS Safety Report 4317652-7 (Version None)
Quarter: 2004Q1

REPORT INFORMATION
  Report Type: 
  Country: None (occurrence: None)
  Receive Date: 20040315
  Receipt Date: 20040302
  Transmission Date: 20041129
  Serious: Yes (Life-Threatening)
  Sender: FDA-Public Use
  Company Number: GB-GLAXOSMITHKLINE-B0325528A

PATIENT
  Age: 66 Year
  Sex: Female
  Weight: 70 kg

DRUGS (4)
  1. SUCCINYLCHOLINE CHLORIDE [Suspect]
     Dosage: 75MG PER DAY
     Route: 042
     Dates: start: 20040204, end: 20040204
  2. ATRACURIUM BESYLATE [Suspect]
     Dosage: 20MG PER DAY
     Route: 042
     Dates: start: 20040204, end: 20040204
  3. FENTANYL [Concomitant]
     Route: 065
  4. PROPOFOL [Concomitant]
     Route: 065

REACTIONS (3)
  - BRONCHOSPASM [None]
  - ERYTHEMA [None]
  - HYPOTENSION [None]
